FAERS Safety Report 5809622-4 (Version None)
Quarter: 2008Q3

REPORT INFORMATION
  Report Type: 
  Country: None (occurrence: None)
  Receive Date: 20080709
  Receipt Date: 20080630
  Transmission Date: 20090109
  Serious: Yes (Other)
  Sender: FDA-Public Use
  Company Number: CIP08001230

PATIENT
  Age: 54 Year
  Sex: Female
  Weight: 55 kg

DRUGS (1)
  1. ACTONEL [Suspect]
     Indication: OSTEOPOROSIS
     Dosage: 35 MG ONCE WEEKLY, ORAL
     Route: 048
     Dates: start: 20070401

REACTIONS (5)
  - ATROPHY [None]
  - BONE DISORDER [None]
  - OSTEOLYSIS [None]
  - PERIODONTAL DISEASE [None]
  - PERIODONTITIS [None]
